FAERS Safety Report 9278724 (Version 1)
Quarter: 2013Q2

REPORT INFORMATION
  Report Type: Report from Study
  Country: US (occurrence: US)
  Receive Date: 20130508
  Receipt Date: 20130508
  Transmission Date: 20140414
  Serious: Yes (Hospitalization)
  Sender: FDA-Public Use
  Company Number: US-ABBOTT-13P-163-1084782-00

PATIENT
  Age: 26 Year
  Sex: Male
  Weight: 64.47 kg

DRUGS (6)
  1. HUMIRA [Suspect]
     Indication: CROHN^S DISEASE
     Dates: start: 20130202
  2. NORCO [Concomitant]
     Indication: PRODUCT USED FOR UNKNOWN INDICATION
  3. KLONOPIN [Concomitant]
     Indication: PRODUCT USED FOR UNKNOWN INDICATION
  4. MARINOL [Concomitant]
     Indication: PRODUCT USED FOR UNKNOWN INDICATION
  5. UCERIS [Concomitant]
     Indication: CROHN^S DISEASE
     Dates: start: 20130325
  6. 6MP [Concomitant]
     Indication: CROHN^S DISEASE
     Dates: start: 20130325

REACTIONS (5)
  - Intestinal obstruction [Recovered/Resolved]
  - Crohn^s disease [Recovered/Resolved]
  - Abdominal pain [Recovered/Resolved]
  - Vomiting [Recovered/Resolved]
  - Drug ineffective [Recovered/Resolved]
